FAERS Safety Report 4649499-6 (Version None)
Quarter: 2005Q2

REPORT INFORMATION
  Report Type: 
  Country: None (occurrence: None)
  Receive Date: 20050428
  Receipt Date: 20050428
  Transmission Date: 20051028
  Serious: Yes (Other)
  Sender: FDA-Public Use
  Company Number: None

PATIENT
  Age: 53 Year
  Sex: Female
  Weight: 113.3993 kg

DRUGS (2)
  1. GOLYTELY [Suspect]
     Indication: COLONOSCOPY
     Dosage: AS ORDERED MIXED WITH    ORAL
     Route: 048
     Dates: start: 20050414, end: 20050414
  2. NULYTELY [Suspect]
     Dosage: AS ORDERED ORAL
     Route: 048

REACTIONS (4)
  - ABDOMINAL PAIN UPPER [None]
  - FLUSHING [None]
  - MIGRAINE [None]
  - PHARMACEUTICAL PRODUCT COMPLAINT [None]
